FAERS Safety Report 16585506 (Version 5)
Quarter: 2020Q3

REPORT INFORMATION
  Report Type: Spontaneous
  Country: US (occurrence: US)
  Receive Date: 20190717
  Receipt Date: 20200724
  Transmission Date: 20201102
  Serious: Yes (Hospitalization, Other)
  Sender: FDA-Public Use
  Company Number: US-ACTELION-A-NJ2019-192987

PATIENT
  Age: 54 Year
  Sex: Male

DRUGS (3)
  1. UPTRAVI [Suspect]
     Active Substance: SELEXIPAG
     Indication: PULMONARY ARTERIAL HYPERTENSION
     Dosage: 1200 MCG, BID
     Route: 048
  2. UPTRAVI [Suspect]
     Active Substance: SELEXIPAG
     Dosage: 400 MCG, BID
     Route: 048
     Dates: start: 20190625
  3. UPTRAVI [Suspect]
     Active Substance: SELEXIPAG
     Dosage: 800 MCG, BID/400 MCG BID
     Route: 048
     Dates: start: 20190626

REACTIONS (7)
  - Heart rate decreased [Unknown]
  - Biopsy [Unknown]
  - Heart rate increased [Unknown]
  - Rash [Unknown]
  - Facial paralysis [Unknown]
  - Tooth disorder [Unknown]
  - Confusional state [Unknown]

NARRATIVE: CASE EVENT DATE: 202006
